FAERS Safety Report 25418413 (Version 1)
Quarter: 2025Q2

REPORT INFORMATION
  Report Type: Spontaneous
  Country: US (occurrence: None)
  Receive Date: 20250606
  Receipt Date: 20250606
  Transmission Date: 20250717
  Serious: Yes (Life-Threatening, Hospitalization)
  Sender: FDA-CTU
  Company Number: None

PATIENT
  Age: 59 Year
  Sex: Male
  Weight: 115 kg

DRUGS (1)
  1. TIRZEPATIDE [Suspect]
     Active Substance: TIRZEPATIDE
     Indication: Diabetes mellitus
     Route: 058

REACTIONS (4)
  - Small intestinal obstruction [None]
  - Ileus [None]
  - Diverticulum intestinal [None]
  - Therapy cessation [None]

NARRATIVE: CASE EVENT DATE: 20250308
